FAERS Safety Report 19274919 (Version 2)
Quarter: 2021Q3

REPORT INFORMATION
  Report Type: Spontaneous
  Country: US (occurrence: US)
  Receive Date: 20210519
  Receipt Date: 20210727
  Transmission Date: 20211014
  Serious: Yes (Other)
  Sender: FDA-Public Use
  Company Number: US-PFIZER INC-2021349416

PATIENT
  Age: 50 Year
  Sex: Female

DRUGS (1)
  1. XELJANZ XR [Suspect]
     Active Substance: TOFACITINIB CITRATE
     Indication: RHEUMATOID ARTHRITIS
     Dosage: 11 MG, 1X/DAY
     Route: 048
     Dates: start: 20210207

REACTIONS (7)
  - Liver disorder [Unknown]
  - Anxiety [Unknown]
  - Decreased immune responsiveness [Unknown]
  - Thrombosis [Unknown]
  - Fatigue [Recovered/Resolved]
  - Depressed mood [Unknown]
  - Platelet count increased [Unknown]

NARRATIVE: CASE EVENT DATE: 2021
